FAERS Safety Report 16262950 (Version 1)
Quarter: 2019Q2

REPORT INFORMATION
  Report Type: Report from Study
  Country: US (occurrence: US)
  Receive Date: 20190502
  Receipt Date: 20190502
  Transmission Date: 20190711
  Serious: Yes (Hospitalization, Other)
  Sender: FDA-Public Use
  Company Number: US-ROCHE-2231904

PATIENT
  Age: 74 Year
  Sex: Female

DRUGS (2)
  1. OCREVUS [Suspect]
     Active Substance: OCRELIZUMAB
     Dosage: 2ND HALF DOSE; ONGOING: UNKNOWN
     Route: 065
     Dates: start: 20181204
  2. OCREVUS [Suspect]
     Active Substance: OCRELIZUMAB
     Indication: PRIMARY PROGRESSIVE MULTIPLE SCLEROSIS
     Dosage: FIRST HALF DOSE ;ONGOING: UNKNOWN
     Route: 065
     Dates: start: 20181120

REACTIONS (8)
  - Syncope [Recovered/Resolved]
  - Myocardial necrosis marker increased [Not Recovered/Not Resolved]
  - Cardiac disorder [Unknown]
  - Renal impairment [Unknown]
  - Renal disorder [Not Recovered/Not Resolved]
  - Sepsis [Unknown]
  - Decreased immune responsiveness [Unknown]
  - Multiple sclerosis [Unknown]

NARRATIVE: CASE EVENT DATE: 20181212
